FAERS Safety Report 6853480-6 (Version None)
Quarter: 2010Q3

REPORT INFORMATION
  Report Type: 
  Country: None (occurrence: None)
  Receive Date: 20100717
  Receipt Date: 20071208
  Transmission Date: 20110219
  Serious: No
  Sender: FDA-Public Use
  Company Number: US-PFIZER INC-2007104217

PATIENT
  Sex: Female
  Weight: 80.7 kg

DRUGS (3)
  1. CHANTIX [Suspect]
     Indication: SMOKING CESSATION THERAPY
     Dates: start: 20071130
  2. MULTI-VITAMINS [Concomitant]
  3. ANTIOXIDANTS [Concomitant]

REACTIONS (5)
  - DRY EYE [None]
  - DRY MOUTH [None]
  - NAUSEA [None]
  - TREMOR [None]
  - VOMITING [None]
